FAERS Safety Report 25016131 (Version 1)
Quarter: 2025Q1

REPORT INFORMATION
  Report Type: Spontaneous
  Country: US (occurrence: US)
  Receive Date: 20250227
  Receipt Date: 20250227
  Transmission Date: 20250409
  Serious: No
  Sender: NOVARTIS
  Company Number: US-002147023-NVSC2025US029408

PATIENT
  Age: 85 Year
  Sex: Male

DRUGS (2)
  1. LEQVIO [Suspect]
     Active Substance: INCLISIRAN SODIUM
     Indication: Blood cholesterol increased
     Route: 065
     Dates: start: 20240611
  2. LEQVIO [Suspect]
     Active Substance: INCLISIRAN SODIUM
     Route: 065
     Dates: start: 20240917

REACTIONS (2)
  - High density lipoprotein abnormal [Unknown]
  - Low density lipoprotein abnormal [Unknown]

NARRATIVE: CASE EVENT DATE: 20241001
